FAERS Safety Report 15385630 (Version 1)
Quarter: 2018Q3

REPORT INFORMATION
  Report Type: Spontaneous
  Country: US (occurrence: US)
  Receive Date: 20180914
  Receipt Date: 20180914
  Transmission Date: 20181010
  Serious: Yes (Life-Threatening, Hospitalization)
  Sender: FDA-Public Use
  Company Number: US-TEVA-2018-US-934803

PATIENT
  Age: 6 Week
  Sex: Male
  Weight: 5.96 kg

DRUGS (8)
  1. SEVOFLURANE. [Suspect]
     Active Substance: SEVOFLURANE
     Indication: INDUCTION OF ANAESTHESIA
     Dosage: INDUCTION OF ANAESTHESIA WAS CARRIED OUT WITH INCREMENTAL INHALATION OF SEVOFLURANE IN OXYGEN.
     Route: 055
  2. OXYGEN. [Concomitant]
     Active Substance: OXYGEN
     Dosage: INDUCTION OF ANAESTHESIA WAS CARRIED OUT WITH INCREMENTAL INHALATION OF SEVOFLURANE IN OXYGEN.
     Route: 055
  3. CYCLOPENTOLATE. [Concomitant]
     Active Substance: CYCLOPENTOLATE
     Route: 047
  4. PROPOFOL. [Suspect]
     Active Substance: PROPOFOL
     Indication: INDUCTION OF ANAESTHESIA
     Route: 042
  5. FENTANYL. [Suspect]
     Active Substance: FENTANYL
     Indication: INDUCTION OF ANAESTHESIA
     Route: 042
  6. OFLOXACIN. [Concomitant]
     Active Substance: OFLOXACIN
     Route: 047
  7. PHENYLEPHRINE [Concomitant]
     Active Substance: PHENYLEPHRINE\PHENYLEPHRINE HYDROCHLORIDE
     Route: 047
  8. ROCURONIUM [Suspect]
     Active Substance: ROCURONIUM BROMIDE
     Route: 042

REACTIONS (4)
  - Hypotension [Recovered/Resolved]
  - Myocardial ischaemia [Recovered/Resolved]
  - Electrocardiogram T wave inversion [Recovered/Resolved]
  - Electrocardiogram ST segment depression [Recovered/Resolved]
